FAERS Safety Report 18688283 (Version 9)
Quarter: 2021Q4

REPORT INFORMATION
  Report Type: Spontaneous
  Country: PL (occurrence: PL)
  Receive Date: 20201231
  Receipt Date: 20211018
  Transmission Date: 20220303
  Serious: Yes (Life-Threatening, Hospitalization, Other)
  Sender: FDA-Public Use
  Company Number: PL-RECORDATI-2020005288

PATIENT
  Age: 69 Year
  Sex: Female

DRUGS (18)
  1. METOPROLOL [Interacting]
     Active Substance: METOPROLOL
     Indication: Hypertension
     Dosage: 100 MILLIGRAM, ONCE A DAY
     Route: 048
  2. METOPROLOL [Interacting]
     Active Substance: METOPROLOL
     Dosage: 200 MILLIGRAM, ONCE A DAY
     Route: 065
  3. ROSUVASTATIN [Suspect]
     Active Substance: ROSUVASTATIN
     Indication: Hypertension
     Dosage: 10 MILLIGRAM, ONCE A DAY
     Route: 048
  4. ASPIRIN [Interacting]
     Active Substance: ASPIRIN
     Indication: Upper respiratory tract infection
     Dosage: UNK FOR 3 DAYS
     Route: 048
  5. ASPIRIN [Interacting]
     Active Substance: ASPIRIN
     Indication: Infection
  6. ASPIRIN [Interacting]
     Active Substance: ASPIRIN
     Indication: Viral infection
  7. DABIGATRAN [Interacting]
     Active Substance: DABIGATRAN
     Indication: Ischaemic stroke
     Dosage: 150 MILLIGRAM, TWO TIMES A DAY
     Route: 048
  8. DABIGATRAN [Interacting]
     Active Substance: DABIGATRAN
     Indication: Anticoagulant therapy
     Dosage: 300 MILLIGRAM, ONCE A DAY
     Route: 048
  9. DABIGATRAN [Interacting]
     Active Substance: DABIGATRAN
     Indication: Prophylaxis
  10. ITRACONAZOLE [Interacting]
     Active Substance: ITRACONAZOLE
     Indication: Tinea versicolour
     Dosage: 100 MILLIGRAM, TWO TIMES A DAY FOR 7 DAYS
     Route: 048
  11. KETOPROFEN [Suspect]
     Active Substance: KETOPROFEN
     Indication: Arthralgia
     Dosage: AS NECESSARY, PRN, TAKEN AT TIMES OF SEVERE ARTHRALGIA
     Route: 048
  12. KETOPROFEN [Suspect]
     Active Substance: KETOPROFEN
     Indication: Analgesic therapy
  13. NIMESULIDE [Interacting]
     Active Substance: NIMESULIDE
     Indication: Antiinflammatory therapy
     Dosage: 100 MILLIGRAM, TWO TIMES A DAY
     Route: 048
  14. NIMESULIDE [Interacting]
     Active Substance: NIMESULIDE
     Indication: Analgesic therapy
  15. NIMESULIDE [Interacting]
     Active Substance: NIMESULIDE
     Indication: Pain
  16. NIMESULIDE [Interacting]
     Active Substance: NIMESULIDE
     Indication: Analgesic intervention supportive therapy
  17. AMLODIPINE BESYLATE\INDAPAMIDE\PERINDOPRIL ARGININE [Suspect]
     Active Substance: AMLODIPINE BESYLATE\INDAPAMIDE\PERINDOPRIL ARGININE
     Indication: Hypertension
     Dosage: 1 DOSAGE FORM, ONCE A DAY, IN THE MORNING
     Route: 048
  18. PROPAFENONE [Interacting]
     Active Substance: PROPAFENONE
     Indication: Atrial fibrillation
     Dosage: 300 MILLIGRAM, AS NECESSARY (AS A SINGLE DOSE)
     Route: 048

REACTIONS (25)
  - Atrioventricular block complete [Recovered/Resolved]
  - Haemorrhage [Unknown]
  - Gastritis erosive [Recovered/Resolved]
  - Drug interaction [Recovered/Resolved]
  - Gastrointestinal haemorrhage [Recovered/Resolved]
  - Asthenia [Recovered/Resolved]
  - Syncope [Recovered/Resolved]
  - Atrioventricular block [Unknown]
  - Pallor [Recovered/Resolved]
  - Cardiomyopathy [Recovered/Resolved]
  - Bradyarrhythmia [Recovered/Resolved]
  - Troponin increased [Recovered/Resolved]
  - Duplicate therapy error [Recovered/Resolved]
  - Drug-disease interaction [Recovered/Resolved]
  - Drug ineffective [Unknown]
  - Incorrect dose administered [Unknown]
  - Product use issue [Unknown]
  - Anaemia [Recovered/Resolved]
  - Circumstance or information capable of leading to medication error [Recovering/Resolving]
  - Labelled drug-drug interaction medication error [Unknown]
  - Product prescribing issue [Recovered/Resolved]
  - Intentional product use issue [Unknown]
  - Product dispensing issue [Unknown]
  - Overdose [Unknown]
  - Off label use [Unknown]
